FAERS Safety Report 18134226 (Version 1)
Quarter: 2020Q3

REPORT INFORMATION
  Report Type: Spontaneous
  Country: US (occurrence: US)
  Receive Date: 20200811
  Receipt Date: 20200811
  Transmission Date: 20201103
  Serious: No
  Sender: FDA-Public Use
  Company Number: US-ASTRAZENECA-2020SE96844

PATIENT
  Age: 20941 Day
  Sex: Male
  Weight: 80.3 kg

DRUGS (3)
  1. BUDESONIDE AND FORMOTEROL AEROSOL [Suspect]
     Active Substance: BUDESONIDE\FORMOTEROL FUMARATE DIHYDRATE
     Indication: PULMONARY FIBROSIS
     Dosage: 80/4.5 MCG INHALER, ONE PUFF TWICE A DAY
     Route: 055
     Dates: start: 20200728
  2. RADIATION [Concomitant]
     Active Substance: RADIATION THERAPY
     Indication: LUNG NEOPLASM MALIGNANT
     Dates: start: 201910, end: 202004
  3. COLCHICINE. [Concomitant]
     Active Substance: COLCHICINE
     Indication: GOUT
     Dosage: AS REQUIRED

REACTIONS (2)
  - Wheezing [Not Recovered/Not Resolved]
  - Off label use [Unknown]

NARRATIVE: CASE EVENT DATE: 20200728
